APPROVED DRUG PRODUCT: BUSPIRONE HYDROCHLORIDE
Active Ingredient: BUSPIRONE HYDROCHLORIDE
Strength: 10MG
Dosage Form/Route: TABLET;ORAL
Application: A210907 | Product #002 | TE Code: AB
Applicant: UNICHEM LABORATORIES LTD
Approved: Nov 14, 2019 | RLD: No | RS: No | Type: RX